FAERS Safety Report 7079399-6 (Version None)
Quarter: 2010Q4

REPORT INFORMATION
  Report Type: 
  Country: None (occurrence: None)
  Receive Date: 20101022
  Receipt Date: 20101006
  Transmission Date: 20110411
  Serious: Yes (Life-Threatening)
  Sender: FDA-Public Use
  Company Number: DSA_44084_2010

PATIENT
  Age: 82 Year
  Sex: Female

DRUGS (4)
  1. ENALAPRIL MALEATE [Suspect]
     Indication: PRODUCT USED FOR UNKNOWN INDICATION
     Dosage: DF ORAL
     Route: 048
     Dates: end: 20081101
  2. ATENOLOL [Concomitant]
  3. WARAN [Concomitant]
  4. FURIX [Concomitant]

REACTIONS (8)
  - ADRENAL INSUFFICIENCY [None]
  - AZOTAEMIA [None]
  - BLOOD CORTISOL DECREASED [None]
  - DECREASED APPETITE [None]
  - HYPERKALAEMIA [None]
  - HYPONATRAEMIA [None]
  - HYPOTONIA [None]
  - POOR PERIPHERAL CIRCULATION [None]
